FAERS Safety Report 15315789 (Version 4)
Quarter: 2020Q1

REPORT INFORMATION
  Report Type: Report from Study
  Country: US (occurrence: US)
  Receive Date: 20180824
  Receipt Date: 20200324
  Transmission Date: 20200409
  Serious: Yes (Death, Other)
  Sender: FDA-Public Use
  Company Number: US-INCYTE CORPORATION-2018IN008520

PATIENT

DRUGS (64)
  1. JAKAFI [Suspect]
     Active Substance: RUXOLITINIB
     Indication: MYELOFIBROSIS
     Dosage: 10-20 MG TABLETS
     Route: 048
     Dates: start: 20171207
  2. JAKAFI [Suspect]
     Active Substance: RUXOLITINIB
     Dosage: 10 MILLIGRAM, BID
     Route: 065
     Dates: start: 20180604
  3. VALACYCLOVIR [Concomitant]
     Active Substance: VALACYCLOVIR HYDROCHLORIDE
     Indication: SEXUALLY TRANSMITTED DISEASE
     Dosage: 500 MILLIGRAM
     Route: 065
     Dates: start: 20171207, end: 20180529
  4. HYDROXYUREA. [Concomitant]
     Active Substance: HYDROXYUREA
     Dosage: UNK
     Route: 065
     Dates: start: 20130630, end: 20140528
  5. HEPARIN [Concomitant]
     Active Substance: HEPARIN SODIUM
     Indication: ARTHRALGIA
     Dosage: 5000 UNITS
     Route: 065
     Dates: start: 20180527, end: 20180529
  6. IOPAMIDOL [Concomitant]
     Active Substance: IOPAMIDOL
     Indication: CONTRAST MEDIA REACTION
     Dosage: 75 MILLILITER
     Route: 065
     Dates: start: 20180611, end: 20180612
  7. ONDANSETRON [Concomitant]
     Active Substance: ONDANSETRON
     Indication: NAUSEA
     Dosage: 8 MILLIGRAM
     Route: 065
     Dates: start: 20180526
  8. ONDANSETRON [Concomitant]
     Active Substance: ONDANSETRON
     Indication: VOMITING
  9. PROCHLORPERAZINE MALEATE. [Concomitant]
     Active Substance: PROCHLORPERAZINE MALEATE
     Indication: NAUSEA
     Dosage: 10 MILLIGRAM PRN
     Route: 065
     Dates: start: 20180611, end: 20180613
  10. CEFEPIME [Concomitant]
     Active Substance: CEFEPIME HYDROCHLORIDE
     Indication: PYREXIA
     Dosage: 2 GRAM
     Route: 065
     Dates: start: 20180611, end: 20180613
  11. ROCEPHIN [Concomitant]
     Active Substance: CEFTRIAXONE SODIUM
     Indication: MYELODYSPLASTIC SYNDROME
     Dosage: 1 G, 10 ML; 5 TIMES, QD
     Route: 042
     Dates: start: 20180709, end: 20180713
  12. DIAZEPAM. [Concomitant]
     Active Substance: DIAZEPAM
     Indication: ANXIETY
     Dosage: 10 MILLIGRAM PRN
     Route: 065
     Dates: start: 20200213
  13. FISH OIL OMEGA 3 [Concomitant]
     Active Substance: FISH OIL
     Indication: NUTRITIONAL SUPPLEMENTATION
     Dosage: 300/1000 MG TID
     Route: 065
     Dates: start: 20171207, end: 20180430
  14. IBUPROFEN. [Concomitant]
     Active Substance: IBUPROFEN
     Indication: PAIN
     Dosage: 400 MG PRN
     Route: 065
     Dates: start: 20171207, end: 20180430
  15. OXYBUTYNIN. [Concomitant]
     Active Substance: OXYBUTYNIN CHLORIDE
     Indication: BLADDER DISORDER
     Dosage: 10 MILLIGRAM, QD
     Route: 065
     Dates: start: 20171207, end: 20180430
  16. PSYLLIUM HUSK [PLANTAGO OVATA HUSK] [Concomitant]
     Active Substance: HERBALS\PLANTAGO OVATA SEED COAT
     Indication: CONSTIPATION
     Dosage: 5 GRAM, TID
     Route: 065
     Dates: start: 20171207, end: 20180430
  17. TRAZODONE [Concomitant]
     Active Substance: TRAZODONE HYDROCHLORIDE
     Indication: ANXIETY
     Dosage: 50 MILLIGRAM PRN
     Route: 065
     Dates: start: 20171109, end: 20180410
  18. SENNA LAXATIVE AND DOCUSATE SODIUM [Concomitant]
     Indication: CONSTIPATION
     Dosage: 1-2 TABLET PRN
     Route: 065
     Dates: start: 20180611
  19. LEVOFLOXACIN. [Concomitant]
     Active Substance: LEVOFLOXACIN
     Indication: ANTIBIOTIC PROPHYLAXIS
     Dosage: 750 MILLIGRAM, QD
     Route: 065
     Dates: start: 20180702
  20. DACOGEN [Concomitant]
     Active Substance: DECITABINE
     Indication: MYELOFIBROSIS
  21. ACETAMINOPHEN. [Concomitant]
     Active Substance: ACETAMINOPHEN
     Indication: ARTHRALGIA
     Dosage: 650 MILLIGRAM
     Dates: start: 20180527, end: 20180529
  22. ASPIRIN EC [Concomitant]
     Active Substance: ASPIRIN
     Dosage: 81 MILLIGRAM, QD
     Route: 065
     Dates: start: 20180611
  23. PANTOPRAZOLE [Concomitant]
     Active Substance: PANTOPRAZOLE
     Dosage: 40 MILLIGRAM, QD
     Route: 065
     Dates: start: 20180611, end: 20180613
  24. HYDROXYUREA. [Concomitant]
     Active Substance: HYDROXYUREA
     Indication: ESSENTIAL THROMBOCYTHAEMIA
     Dosage: UNK
     Route: 065
     Dates: start: 20130626, end: 20130630
  25. LOPERAMIDE [Concomitant]
     Active Substance: LOPERAMIDE
     Indication: DIARRHOEA
     Dosage: 2 MILLIGRAM
     Route: 065
     Dates: start: 20180502, end: 20180528
  26. SENNA [SENNA ALEXANDRINA] [Concomitant]
     Active Substance: SENNA LEAF
     Indication: CONSTIPATION
     Dosage: 1 TABLET BID
     Route: 065
     Dates: start: 20180611, end: 20180613
  27. PROCHLORPERAZINE. [Concomitant]
     Active Substance: PROCHLORPERAZINE
     Indication: VOMITING
  28. ALTEPLASE. [Concomitant]
     Active Substance: ALTEPLASE
     Indication: TRANSPLANT
     Dosage: 2 MILLIGRAM
     Route: 065
     Dates: start: 20180611, end: 20180613
  29. HYOSCYAMINE SULFATE. [Concomitant]
     Active Substance: HYOSCYAMINE SULFATE
     Indication: PROCTALGIA
     Dosage: 0.125 MILLIGRAM
     Route: 065
     Dates: start: 20180627
  30. JAKAFI [Suspect]
     Active Substance: RUXOLITINIB
     Dosage: 10 MILLIGRAM, BID
     Route: 065
     Dates: start: 20180214, end: 20180502
  31. ACETAMINOPHEN. [Concomitant]
     Active Substance: ACETAMINOPHEN
     Indication: ABDOMINAL PAIN
     Dosage: 325 MILLIGRAM PRN
     Route: 065
     Dates: start: 20150213, end: 20180430
  32. ACYCLOVIR [ACICLOVIR] [Concomitant]
     Active Substance: ACYCLOVIR
     Dosage: 5 PERCENT
     Route: 065
     Dates: start: 20180126, end: 20180529
  33. INTERFERON [Concomitant]
     Active Substance: INTERFERON
     Indication: ESSENTIAL THROMBOCYTHAEMIA
     Dosage: 180 MICROGRAM
     Route: 065
     Dates: start: 20160107, end: 201607
  34. LACTULOSE. [Concomitant]
     Active Substance: LACTULOSE
     Indication: CONSTIPATION
     Dosage: 20 GRAM
     Route: 065
     Dates: start: 20180611, end: 20180612
  35. ENOXAPARIN [Concomitant]
     Active Substance: ENOXAPARIN
     Indication: PROPHYLAXIS
     Dosage: 40 MILLIGRAM, QD
     Route: 065
     Dates: start: 20180611, end: 20180613
  36. ROCEPHIN [Concomitant]
     Active Substance: CEFTRIAXONE SODIUM
     Indication: MYELOFIBROSIS
  37. PANTOPRAZOLE [Concomitant]
     Active Substance: PANTOPRAZOLE
     Indication: GASTROOESOPHAGEAL REFLUX DISEASE
     Dosage: 20 MILLIGRAM, QD
     Route: 065
     Dates: start: 20150213
  38. ELECTROLYTES NOS [Concomitant]
     Active Substance: ELECTROLYTES NOS
     Indication: CONSTIPATION
     Dosage: 240 MILLILITER
     Route: 065
     Dates: start: 20180530, end: 20180613
  39. JAKAFI [Suspect]
     Active Substance: RUXOLITINIB
     Dosage: 10 MG, BID
     Route: 048
     Dates: start: 20171229
  40. JAKAFI [Suspect]
     Active Substance: RUXOLITINIB
     Dosage: 15 MG, BID
     Route: 048
     Dates: start: 20180529
  41. JAKAFI [Suspect]
     Active Substance: RUXOLITINIB
     Dosage: 10 MG, BID
     Route: 048
     Dates: start: 20180604
  42. JAKAFI [Suspect]
     Active Substance: RUXOLITINIB
     Dosage: 20 MG, BID
     Route: 048
     Dates: start: 20180628
  43. HYDROXYUREA. [Concomitant]
     Active Substance: HYDROXYUREA
     Indication: THROMBOCYTOSIS
     Dosage: 500 MILLIGRAM, BID
     Route: 065
     Dates: start: 201303, end: 20130626
  44. HYDROXYUREA. [Concomitant]
     Active Substance: HYDROXYUREA
     Dosage: 1000 MILLIGRAM, QD
     Route: 065
     Dates: start: 20150213, end: 20171207
  45. LIDOCAINE. [Concomitant]
     Active Substance: LIDOCAINE
     Dosage: 2 PATCH
     Route: 065
     Dates: start: 20180529, end: 20180613
  46. POTASSIUM CHLORIDE. [Concomitant]
     Active Substance: POTASSIUM CHLORIDE
     Indication: NUTRITIONAL SUPPLEMENTATION
     Dosage: 40 MILLIEQUIVALENT PRN
     Route: 065
     Dates: start: 20180611, end: 20180611
  47. JAKAFI [Suspect]
     Active Substance: RUXOLITINIB
     Dosage: 10 MG, BID
     Route: 048
     Dates: start: 20180702
  48. TADALAFIL. [Concomitant]
     Active Substance: TADALAFIL
     Dosage: UNK
     Route: 065
     Dates: start: 20171109, end: 20171109
  49. ACYCLOVIR [ACICLOVIR] [Concomitant]
     Active Substance: ACYCLOVIR
     Dosage: 800 MILLIGRAM, BID
     Route: 065
     Dates: start: 20180702
  50. LIDOCAINE. [Concomitant]
     Active Substance: LIDOCAINE
     Dosage: 2 PATCH QD
     Route: 065
     Dates: start: 20180611, end: 20180611
  51. FENTANYL. [Concomitant]
     Active Substance: FENTANYL
     Indication: BIOPSY BONE MARROW
     Dosage: 1 MILLILITER
     Route: 065
     Dates: start: 20180531, end: 20180531
  52. PROCHLORPERAZINE MALEATE. [Concomitant]
     Active Substance: PROCHLORPERAZINE MALEATE
     Indication: VOMITING
  53. PROCHLORPERAZINE. [Concomitant]
     Active Substance: PROCHLORPERAZINE
     Indication: NAUSEA
     Dosage: 10 MILLIGRAM PRN
     Route: 065
     Dates: start: 20180611, end: 20180611
  54. MAGNESIUM SULFATE. [Concomitant]
     Active Substance: MAGNESIUM SULFATE
     Indication: NUTRITIONAL SUPPLEMENTATION
     Dosage: 4 GRAM PRN
     Route: 065
     Dates: start: 20180611, end: 20180613
  55. JAKAFI [Suspect]
     Active Substance: RUXOLITINIB
     Dosage: 15 MILLIGRAM, BID
     Route: 048
     Dates: start: 20171207, end: 20180213
  56. JAKAFI [Suspect]
     Active Substance: RUXOLITINIB
     Dosage: 100 MILLIGRAM, BID
     Dates: start: 20180502, end: 20180529
  57. DACOGEN [Concomitant]
     Active Substance: DECITABINE
     Indication: MYELODYSPLASTIC SYNDROME
     Dosage: 36.2 MG, 20MG/M^2, 5 TIMES, QD
     Route: 042
     Dates: start: 20180709, end: 20180713
  58. ASPIRIN EC [Concomitant]
     Active Substance: ASPIRIN
     Indication: PROPHYLAXIS
     Dosage: 81 MILLIGRAM, QD
     Route: 065
     Dates: start: 20150213
  59. TADALAFIL. [Concomitant]
     Active Substance: TADALAFIL
     Indication: ERECTILE DYSFUNCTION
     Dosage: 10 MILLIGRAM PRN
     Route: 065
     Dates: start: 20171207
  60. ACYCLOVIR [ACICLOVIR] [Concomitant]
     Active Substance: ACYCLOVIR
     Indication: SEXUALLY TRANSMITTED DISEASE
     Dosage: UNK
     Route: 065
     Dates: start: 20171109, end: 20171207
  61. HYDROXYUREA. [Concomitant]
     Active Substance: HYDROXYUREA
     Dosage: UNK
     Route: 065
     Dates: start: 20140528, end: 20140820
  62. HYDROXYUREA. [Concomitant]
     Active Substance: HYDROXYUREA
     Dosage: UNK
     Route: 065
     Dates: start: 20140820, end: 20150213
  63. LIDOCAINE. [Concomitant]
     Active Substance: LIDOCAINE
     Indication: ARTHRALGIA
     Dosage: 1 PATCH QD
     Route: 065
     Dates: start: 20180527, end: 20180529
  64. FLUCONAZOLE. [Concomitant]
     Active Substance: FLUCONAZOLE
     Indication: PROPHYLAXIS
     Dosage: 200 MILLIGRAM, QD
     Route: 065
     Dates: start: 20180702

REACTIONS (6)
  - Back pain [Not Recovered/Not Resolved]
  - Nausea [Not Recovered/Not Resolved]
  - Neoplasm [Fatal]
  - Chest pain [Not Recovered/Not Resolved]
  - Vomiting [Not Recovered/Not Resolved]
  - Pyrexia [Recovered/Resolved]

NARRATIVE: CASE EVENT DATE: 20180526
